FAERS Safety Report 4667895-8 (Version None)
Quarter: 2005Q2

REPORT INFORMATION
  Report Type: 
  Country: None (occurrence: None)
  Receive Date: 20050520
  Receipt Date: 20050514
  Transmission Date: 20051028
  Serious: Yes (Hospitalization)
  Sender: FDA-Public Use
  Company Number: AR-ROCHE-404665

PATIENT
  Age: 50 Year
  Sex: Female

DRUGS (5)
  1. PEG-INTERFERON ALFA 2A (RO 25-8310) [Suspect]
     Route: 058
     Dates: start: 20050107, end: 20050422
  2. PEG-INTERFERON ALFA 2A (RO 25-8310) [Suspect]
     Dosage: REDUCED DOSE DUE TO LEUKOPENIA.
     Route: 058
     Dates: start: 20050429
  3. RIBAVIRIN [Suspect]
     Dosage: TWO DIVIDED DOSES DAILY.
     Route: 048
     Dates: start: 20050107, end: 20050419
  4. RIBAVIRIN [Suspect]
     Dosage: TWO DIVIDED DOSES DAILY.
     Route: 048
     Dates: start: 20050429
  5. PARACETAMOL [Concomitant]
     Route: 065
     Dates: start: 20050107

REACTIONS (4)
  - ASTHENIA [None]
  - DEHYDRATION [None]
  - GASTROENTERITIS [None]
  - URINARY TRACT INFECTION [None]
